FAERS Safety Report 8972200 (Version 1)
Quarter: 2012Q4

REPORT INFORMATION
  Report Type: 
  Country: US (occurrence: US)
  Receive Date: 20121218
  Receipt Date: 20121218
  Transmission Date: 20130627
  Serious: Yes (Disabling)
  Sender: FDA-Public Use
  Company Number: US-009507513-1212USA005272

PATIENT

DRUGS (2)
  1. PROPECIA [Suspect]
     Indication: ANDROGENETIC ALOPECIA
     Dosage: UNK
     Dates: start: 2006, end: 2008
  2. PROSCAR [Suspect]

REACTIONS (2)
  - Cognitive disorder [Unknown]
  - Sexual dysfunction [Unknown]
